FAERS Safety Report 23448104 (Version 1)
Quarter: 2024Q1

REPORT INFORMATION
  Report Type: Spontaneous
  Country: CN (occurrence: CN)
  Receive Date: 20240126
  Receipt Date: 20240126
  Transmission Date: 20240409
  Serious: Yes (Hospitalization)
  Sender: FDA-Public Use
  Company Number: CN-Eisai-EC-2024-157590

PATIENT
  Age: 44 Year
  Sex: Female
  Weight: 58 kg

DRUGS (3)
  1. HALAVEN [Suspect]
     Active Substance: ERIBULIN MESYLATE
     Indication: Uterine leiomyosarcoma
     Route: 042
     Dates: start: 20231230
  2. BEVACIZUMAB [Concomitant]
     Active Substance: BEVACIZUMAB
     Indication: Uterine leiomyosarcoma
     Dosage: FREQUENCY UNKNOWN.
     Route: 033
     Dates: start: 20240105
  3. ALDESLEUKIN [Concomitant]
     Active Substance: ALDESLEUKIN
     Indication: Uterine leiomyosarcoma
     Dosage: FREQUENCY UNKNOWN.
     Route: 033
     Dates: start: 20240105

REACTIONS (2)
  - Myelosuppression [Recovering/Resolving]
  - Pyrexia [Unknown]

NARRATIVE: CASE EVENT DATE: 20240108
